FAERS Safety Report 4386714-0 (Version None)
Quarter: 2004Q2

REPORT INFORMATION
  Report Type: 
  Country: None (occurrence: None)
  Receive Date: 20040607
  Receipt Date: 20030513
  Transmission Date: 20050107
  Serious: Yes (Other)
  Sender: FDA-Public Use
  Company Number: 329097

PATIENT

DRUGS (6)
  1. ACCUTANE [Suspect]
     Indication: DRUG USE FOR UNKNOWN INDICATION
     Dates: start: 20000403, end: 20010131
  2. LOESTRIN (ETHINYL ESTRADIOL/NORETHINDRONE ACETATE) [Concomitant]
  3. PROTONIX [Concomitant]
  4. RITALIN [Concomitant]
  5. LEXAPRO [Concomitant]
  6. CELEXA [Concomitant]

REACTIONS (1)
  - ABORTION SPONTANEOUS [None]
